FAERS Safety Report 9322617 (Version 1)
Quarter: 2013Q2

REPORT INFORMATION
  Report Type: Spontaneous
  Country: US (occurrence: US)
  Receive Date: 20130531
  Receipt Date: 20130531
  Transmission Date: 20140414
  Serious: No
  Sender: FDA-Public Use
  Company Number: US-ASTRAZENECA-2013SE35399

PATIENT
  Age: 72 Year
  Sex: Female
  Weight: 63.5 kg

DRUGS (5)
  1. PULMICORT FLEXHALER [Suspect]
     Indication: CHRONIC OBSTRUCTIVE PULMONARY DISEASE
     Route: 055
  2. AMLODIPINE [Concomitant]
     Indication: BLOOD PRESSURE ABNORMAL
  3. BISOPROLFUM [Concomitant]
     Dosage: 10MG
  4. SIMVASTATIN [Concomitant]
     Indication: BLOOD CHOLESTEROL ABNORMAL
     Dosage: UNK
  5. PRO AIR [Concomitant]
     Dosage: PRN

REACTIONS (2)
  - Chest discomfort [Unknown]
  - Dyspnoea [Unknown]
